FAERS Safety Report 8598112-4 (Version None)
Quarter: 2012Q3

REPORT INFORMATION
  Report Type: 
  Country: None (occurrence: None)
  Receive Date: 20120816
  Receipt Date: 20120807
  Transmission Date: 20120928
  Serious: Yes (Other)
  Sender: FDA-Public Use
  Company Number: ES-ASTRAZENECA-2012SE55925

PATIENT
  Age: 4 Year
  Sex: Male
  Weight: 20 kg

DRUGS (3)
  1. JOSAMYCIN [Suspect]
     Route: 048
     Dates: start: 20120301, end: 20120301
  2. RHINOCORT [Suspect]
     Route: 045
     Dates: start: 20120101
  3. ACETAMINOPHEN [Suspect]
     Route: 048
     Dates: start: 20110101, end: 20120301

REACTIONS (1)
  - HEPATITIS CHOLESTATIC [None]
